FAERS Safety Report 4513490-0 (Version None)
Quarter: 2004Q4

REPORT INFORMATION
  Report Type: 
  Country: None (occurrence: None)
  Receive Date: 20041130
  Receipt Date: 20041119
  Transmission Date: 20050328
  Serious: Yes (Other)
  Sender: FDA-Public Use
  Company Number: US-JNJFOC-20040405613

PATIENT
  Sex: Female

DRUGS (2)
  1. ORTHO EVRA [Suspect]
     Indication: CONTRACEPTION
     Route: 062
     Dates: start: 20030901
  2. ZYRTEC [Concomitant]

REACTIONS (10)
  - ADNEXA UTERI MASS [None]
  - ADRENAL MASS [None]
  - CYST [None]
  - INFLAMMATION [None]
  - NUCLEAR MAGNETIC RESONANCE IMAGING ABNORMAL [None]
  - OVARIAN CYST [None]
  - OVARIAN MASS [None]
  - PAIN [None]
  - PELVIC PAIN [None]
  - TERATOMA BENIGN [None]
